FAERS Safety Report 5420764-8 (Version None)
Quarter: 2007Q3

REPORT INFORMATION
  Report Type: 
  Country: None (occurrence: None)
  Receive Date: 20070821
  Receipt Date: 20070613
  Transmission Date: 20080115
  Serious: No
  Sender: FDA-Public Use
  Company Number: US-BRISTOL-MYERS SQUIBB COMPANY-13813001

PATIENT
  Sex: Female

DRUGS (1)
  1. ESTRACE [Suspect]

REACTIONS (10)
  - CANDIDIASIS [None]
  - CYSTITIS [None]
  - DYSPAREUNIA [None]
  - HEADACHE [None]
  - HOT FLUSH [None]
  - INCONTINENCE [None]
  - INSOMNIA [None]
  - MOOD SWINGS [None]
  - VAGINAL INFECTION [None]
  - VULVOVAGINAL PRURITUS [None]
